FAERS Safety Report 9960883 (Version 1)
Quarter: 2014Q1

REPORT INFORMATION
  Report Type: Report from Study
  Country: US (occurrence: US)
  Receive Date: 20140305
  Receipt Date: 20140305
  Transmission Date: 20141002
  Serious: No
  Sender: FDA-Public Use
  Company Number: US-ABBVIE-13P-163-1107998-00

PATIENT
  Age: 68 Year
  Sex: Female

DRUGS (7)
  1. HUMIRA [Suspect]
     Indication: CROHN^S DISEASE
     Dates: start: 20120806
  2. DEXILANT [Concomitant]
     Indication: GASTROOESOPHAGEAL REFLUX DISEASE
  3. FERREX [Concomitant]
     Indication: MINERAL SUPPLEMENTATION
  4. SOTALOL [Concomitant]
     Indication: PRODUCT USED FOR UNKNOWN INDICATION
  5. DILTIAZEM [Concomitant]
     Indication: CARDIAC DISORDER
  6. LEXAPRO [Concomitant]
     Indication: DEPRESSION
  7. AMBIEN CR [Concomitant]
     Indication: INSOMNIA
     Dosage: AT BEDTIME

REACTIONS (2)
  - Injection site warmth [Recovered/Resolved]
  - Injection site swelling [Recovered/Resolved]
